FAERS Safety Report 26211812 (Version 1)
Quarter: 2025Q4

REPORT INFORMATION
  Report Type: Spontaneous
  Country: US (occurrence: US)
  Receive Date: 20251230
  Receipt Date: 20251230
  Transmission Date: 20260118
  Serious: No
  Sender: TOLMAR
  Company Number: US-Tolmar-TLM-2025-09787

PATIENT

DRUGS (3)
  1. ELIGARD [Suspect]
     Active Substance: LEUPROLIDE ACETATE
     Indication: Prostate cancer
     Dosage: DOSE NOT ADMINISTERED?BOX LOT: 15548CUS, EXP: 11-2026.?(BOX WAS DISPOSED).?SYRINGE A: 15548AUS, EXP:
     Route: 065
  2. ELIGARD [Suspect]
     Active Substance: LEUPROLIDE ACETATE
     Dosage: REPLACEMENT DOSE
     Route: 065
  3. DEVICE [Suspect]
     Active Substance: DEVICE
     Indication: Prostate cancer
     Dosage: DOSE NOT ADMINISTERED?BOX LOT: 15548CUS, EXP: 11-2026.?(BOX WAS DISPOSED).?SYRINGE A: 15548AUS, EXP:

REACTIONS (3)
  - Intercepted product preparation error [Unknown]
  - Device occlusion [Unknown]
  - Device malfunction [Unknown]
